FAERS Safety Report 9152419 (Version 1)
Quarter: 2013Q1

REPORT INFORMATION
  Report Type: Spontaneous
  Country: DE (occurrence: DE)
  Receive Date: 20130308
  Receipt Date: 20130308
  Transmission Date: 20140127
  Serious: Yes (Other)
  Sender: FDA-Public Use
  Company Number: DE-B.I. PHARMACEUTICALS,INC./RIDGEFIELD-2013-DE-00564DE

PATIENT
  Sex: Female
  Weight: 85 kg

DRUGS (10)
  1. PRADAXA [Suspect]
     Indication: ATRIAL FIBRILLATION
     Dosage: 220 MG
     Route: 048
     Dates: start: 201210, end: 201302
  2. METOPROLOL [Concomitant]
     Dosage: 200 MG
  3. JANUMET [Concomitant]
     Dosage: 2 ANZ
  4. ENALAPRIL [Concomitant]
     Dosage: 5 MG
  5. TORASEMID [Concomitant]
     Dosage: 10 MG
  6. SIMVABETA [Concomitant]
     Dosage: 20 MG
  7. GLIMEPIRID [Concomitant]
     Dosage: 2 MG
  8. AMLODIPIN [Concomitant]
     Dosage: 2.5 MG
  9. NOVAMINSULFON [Concomitant]
     Indication: PAIN
     Dosage: PRN
  10. VITAMIN B12 [Concomitant]
     Route: 058

REACTIONS (3)
  - Atrial thrombosis [Not Recovered/Not Resolved]
  - Drug ineffective [Unknown]
  - Product quality issue [Unknown]
